FAERS Safety Report 6521646-0 (Version None)
Quarter: 2009Q4

REPORT INFORMATION
  Report Type: 
  Country: None (occurrence: None)
  Receive Date: 20091230
  Receipt Date: 20091218
  Transmission Date: 20100525
  Serious: Yes (Other)
  Sender: FDA-Public Use
  Company Number: PHHY2009BR54555

PATIENT
  Sex: Male

DRUGS (2)
  1. RITALIN [Suspect]
     Indication: ATTENTION DEFICIT/HYPERACTIVITY DISORDER
     Dosage: 0.5 DF, UNK
     Route: 048
     Dates: start: 20090201
  2. RITALIN [Suspect]
     Dosage: 1 DF, BID, MORNING AND LUNCH TIME
     Route: 048

REACTIONS (3)
  - AGITATION [None]
  - BREATH SOUNDS ABNORMAL [None]
  - DISTURBANCE IN ATTENTION [None]
